FAERS Safety Report 15886501 (Version 4)
Quarter: 2019Q3

REPORT INFORMATION
  Report Type: Report from Study
  Country: US (occurrence: US)
  Receive Date: 20190129
  Receipt Date: 20190826
  Transmission Date: 20191004
  Serious: Yes (Hospitalization)
  Sender: FDA-Public Use
  Company Number: US-GILEAD-2019-0386792

PATIENT
  Age: 69 Year
  Sex: Female
  Weight: 86.6 kg

DRUGS (45)
  1. ACYCLOVIR [ACICLOVIR] [Concomitant]
     Active Substance: ACYCLOVIR
  2. POTASSIUM CHLORIDE. [Concomitant]
     Active Substance: POTASSIUM CHLORIDE
     Dosage: 20,OTHER,AS NECESSARY
     Route: 041
     Dates: start: 20190112, end: 20190119
  3. POTASSIUM CHLORIDE. [Concomitant]
     Active Substance: POTASSIUM CHLORIDE
     Dosage: 20,OTHER,AS NECESSARY
     Route: 048
     Dates: start: 20190112, end: 20190125
  4. SODIUM CHLORIDE 0.9% [Concomitant]
     Active Substance: SODIUM CHLORIDE
     Dosage: 10,OTHER,AS NECESSARY
     Route: 041
     Dates: start: 20190109, end: 20190109
  5. LACTATED RINGERS SOLUTION [Concomitant]
     Active Substance: CALCIUM CHLORIDE\POTASSIUM CHLORIDE\SODIUM CHLORIDE\SODIUM LACTATE
     Dosage: 1000,ML,AS NECESSARY
     Route: 041
     Dates: start: 20190115, end: 20190120
  6. FLUDARABINE [Suspect]
     Active Substance: FLUDARABINE PHOSPHATE
     Indication: BONE MARROW CONDITIONING REGIMEN
     Dosage: 30 MG/M2, QD
     Route: 042
     Dates: start: 20190104, end: 20190106
  7. ASPIRIN EC [Concomitant]
     Active Substance: ASPIRIN
  8. CHLORHEXIDINE [Concomitant]
     Active Substance: CHLORHEXIDINE
     Dosage: 15,ML,TWICE DAILY
     Route: 048
     Dates: start: 20190122
  9. ENOXAPARIN [Concomitant]
     Active Substance: ENOXAPARIN
     Dosage: 40,MG,DAILY
     Route: 058
     Dates: start: 20190109, end: 20190125
  10. GADOBUTROL. [Concomitant]
     Active Substance: GADOBUTROL
     Dosage: 8.6,OTHER,AS NECESSARY
     Route: 041
     Dates: start: 20190120, end: 20190120
  11. ERGOCALCIFEROL. [Concomitant]
     Active Substance: ERGOCALCIFEROL
     Dosage: 50,000,OTHER,OTHER
     Route: 048
     Dates: start: 20190113
  12. LEVETIRACETAM. [Concomitant]
     Active Substance: LEVETIRACETAM
     Dosage: 750,MG,TWICE DAILY
     Route: 048
     Dates: start: 20190108, end: 20190207
  13. MAGNESIUM SULFATE. [Concomitant]
     Active Substance: MAGNESIUM SULFATE
     Dosage: 4,G,AS NECESSARY
     Route: 041
     Dates: start: 20190105, end: 20190105
  14. PEGFILGRASTIM [Concomitant]
     Active Substance: PEGFILGRASTIM
     Dosage: 6,MG,AS NECESSARY
     Route: 058
     Dates: start: 20190106, end: 20190106
  15. DEXAMETHASONE. [Concomitant]
     Active Substance: DEXAMETHASONE
     Dosage: 10,MG,DAILY
     Route: 041
     Dates: start: 20190116, end: 20190116
  16. AXICABTAGENE CILOLEUCEL [Suspect]
     Active Substance: AXICABTAGENE CILOLEUCEL
     Indication: NON-HODGKIN^S LYMPHOMA
     Dosage: 68.0 ML
     Route: 042
     Dates: start: 20190109, end: 20190109
  17. PNEUMOCOCCAL VACCINE POLYSACCH 23V [Concomitant]
     Active Substance: PNEUMOCOCCAL VACCINE, POLYVALENT 23
  18. SULFAMETHOXAZOLE AND TRIMETHOPRIM [Concomitant]
     Active Substance: SULFAMETHOXAZOLE\TRIMETHOPRIM
  19. METFORMIN [Concomitant]
     Active Substance: METFORMIN HYDROCHLORIDE
     Dosage: 500,MG,TWICE DAILY
     Route: 048
     Dates: start: 20181108
  20. PALONOSETRON. [Concomitant]
     Active Substance: PALONOSETRON HYDROCHLORIDE
     Dosage: 0.25,MG,AS NECESSARY
     Route: 041
     Dates: start: 20190104, end: 20190104
  21. LORAZEPAM. [Concomitant]
     Active Substance: LORAZEPAM
     Dosage: 0.5-1,MG,AS NECESSARY
     Route: 048
     Dates: start: 20190109, end: 20190116
  22. ZARXIO [Concomitant]
     Active Substance: FILGRASTIM-SNDZ
     Dosage: 480,UG,DAILY
     Route: 058
     Dates: start: 20190207, end: 20190212
  23. CYCLOPHOSPHAMIDE. [Suspect]
     Active Substance: CYCLOPHOSPHAMIDE
     Indication: BONE MARROW CONDITIONING REGIMEN
     Dosage: 500 MG/M2, QD
     Route: 042
     Dates: start: 20190104, end: 20190106
  24. CETIRIZINE [Concomitant]
     Active Substance: CETIRIZINE HYDROCHLORIDE
     Dosage: 10,MG,DAILY
     Route: 048
     Dates: start: 20190117, end: 20190123
  25. CYANOCOBALAMIN. [Concomitant]
     Active Substance: CYANOCOBALAMIN
     Dosage: 100,UG,DAILY
     Route: 048
     Dates: start: 20181108
  26. PROCHLORPERAZINE. [Concomitant]
     Active Substance: PROCHLORPERAZINE
     Dosage: 10,MG,THREE TIMES DAILY
     Route: 048
     Dates: start: 20190104, end: 20190119
  27. MESNA. [Suspect]
     Active Substance: MESNA
     Indication: PROPHYLAXIS
     Dosage: 125 MG/M2, BID
     Route: 042
     Dates: start: 20190104, end: 20190106
  28. ACETAMINOPHEN. [Concomitant]
     Active Substance: ACETAMINOPHEN
     Dosage: 1000,MG,AS NECESSARY
     Route: 041
     Dates: start: 20190114, end: 20190117
  29. MAGNESIUM OXIDE. [Concomitant]
     Active Substance: MAGNESIUM OXIDE
     Dosage: 400-800,MG,AS NECESSARY
     Route: 048
     Dates: start: 20190109, end: 20190125
  30. MULTIVITAMINS [VITAMINS NOS] [Concomitant]
     Active Substance: VITAMINS
  31. ASPIRIN [ACETYLSALICYLIC ACID] [Concomitant]
     Active Substance: ASPIRIN
     Dosage: 81,MG,DAILY
     Route: 048
     Dates: start: 20181108
  32. MAGNESIUM SULFATE. [Concomitant]
     Active Substance: MAGNESIUM SULFATE
     Dosage: 2-4,G,AS NECESSARY
     Route: 041
     Dates: start: 20190109, end: 20190119
  33. OXYCODONE [Concomitant]
     Active Substance: OXYCODONE
     Dosage: 2.5-5,MG,AS NECESSARY
     Route: 048
     Dates: start: 20190113, end: 20190113
  34. TOCILIZUMAB. [Concomitant]
     Active Substance: TOCILIZUMAB
     Dosage: 680,MG,DAILY
     Route: 041
     Dates: start: 20190115, end: 20190115
  35. TOCILIZUMAB. [Concomitant]
     Active Substance: TOCILIZUMAB
     Dosage: 686,MG,DAILY
     Route: 041
     Dates: start: 20190116, end: 20190116
  36. CLOTRIMAZOLE. [Concomitant]
     Active Substance: CLOTRIMAZOLE
     Dosage: 10,MG,THREE TIMES DAILY
     Route: 048
     Dates: start: 20190122
  37. DIPHENHYDRAMINE. [Concomitant]
     Active Substance: DIPHENHYDRAMINE
     Dosage: 12.5,MG,AS NECESSARY
     Route: 041
     Dates: start: 20190109, end: 20190109
  38. DIPHENHYDRAMINE. [Concomitant]
     Active Substance: DIPHENHYDRAMINE
     Dosage: 25,MG,FOUR TIMES DAILY
     Route: 041
     Dates: start: 20190115, end: 20190117
  39. DOCUSATE SODIUM. [Concomitant]
     Active Substance: DOCUSATE SODIUM
     Dosage: 100,MG,TWICE DAILY
     Route: 048
     Dates: start: 20190111, end: 20190111
  40. ACETAMINOPHEN. [Concomitant]
     Active Substance: ACETAMINOPHEN
     Dosage: 650-1000,MG,AS NECESSARY
     Route: 048
     Dates: start: 20190109, end: 20190125
  41. LEVOTHYROXINE. [Concomitant]
     Active Substance: LEVOTHYROXINE
     Dosage: 88,UG,DAILY
     Route: 048
     Dates: start: 20181108
  42. PRAMOXINE [Concomitant]
     Active Substance: PRAMOXINE
  43. SIMVASTATIN. [Concomitant]
     Active Substance: SIMVASTATIN
     Dosage: 20,MG,DAILY
     Route: 048
     Dates: start: 20181108
  44. SODIUM CHLORIDE. [Concomitant]
     Active Substance: SODIUM CHLORIDE
  45. HYDROXYZINE [Concomitant]
     Active Substance: HYDROXYZINE HYDROCHLORIDE
     Dosage: 25-50,MG,FOUR TIMES DAILY
     Route: 048
     Dates: start: 20190117, end: 20190120

REACTIONS (5)
  - Embolic stroke [Recovered/Resolved]
  - Fine motor skill dysfunction [Recovered/Resolved]
  - Pyrexia [Recovered/Resolved]
  - Disorganised speech [Recovered/Resolved]
  - Cytokine release syndrome [Recovered/Resolved]

NARRATIVE: CASE EVENT DATE: 20190120
